FAERS Safety Report 13131770 (Version 2)
Quarter: 2017Q2

REPORT INFORMATION
  Report Type: Spontaneous
  Country: US (occurrence: US)
  Receive Date: 20170119
  Receipt Date: 20170405
  Transmission Date: 20170830
  Serious: Yes (Death, Hospitalization)
  Sender: FDA-Public Use
  Company Number: US-BAUSCH-BL-2017-001557

PATIENT
  Sex: Female

DRUGS (1)
  1. XIFAXAN [Suspect]
     Active Substance: RIFAXIMIN
     Indication: LIVER DISORDER
     Route: 048
     Dates: start: 2015

REACTIONS (5)
  - Off label use [Unknown]
  - Internal haemorrhage [Unknown]
  - Myocardial infarction [Fatal]
  - Renal disorder [Fatal]
  - Liver disorder [Fatal]

NARRATIVE: CASE EVENT DATE: 2015
